FAERS Safety Report 4631087-9 (Version None)
Quarter: 2005Q2

REPORT INFORMATION
  Report Type: 
  Country: None (occurrence: None)
  Receive Date: 20050406
  Receipt Date: 20050406
  Transmission Date: 20051028
  Serious: No
  Sender: FDA-Public Use
  Company Number: None

PATIENT
  Age: 58 Year
  Sex: Female
  Weight: 79.8331 kg

DRUGS (2)
  1. METFORMIN 1000 [Suspect]
     Indication: DIABETES MELLITUS NON-INSULIN-DEPENDENT
     Dosage: 1000 MG QD
     Dates: start: 20031101
  2. METFORMIN 1000 [Suspect]
     Indication: INSULIN RESISTANCE
     Dosage: 1000 MG QD
     Dates: start: 20031101

REACTIONS (3)
  - ABDOMINAL DISCOMFORT [None]
  - BLOOD GLUCOSE ABNORMAL [None]
  - PHARMACEUTICAL PRODUCT COMPLAINT [None]
